FAERS Safety Report 15570026 (Version 2)
Quarter: 2018Q4

REPORT INFORMATION
  Report Type: Report from Study
  Country: US (occurrence: US)
  Receive Date: 20181031
  Receipt Date: 20181221
  Transmission Date: 20190205
  Serious: Yes (Death)
  Sender: FDA-Public Use
  Company Number: US-IPSEN BIOPHARMACEUTICALS, INC.-2018-15948

PATIENT
  Age: 70 Year
  Sex: Male
  Weight: 121 kg

DRUGS (2)
  1. TEMOZOLOMIDE. [Suspect]
     Active Substance: TEMOZOLOMIDE
     Indication: GLIOBLASTOMA
     Route: 048
     Dates: start: 20180710, end: 20181011
  2. ONIVYDE [Suspect]
     Active Substance: IRINOTECAN HYDROCHLORIDE
     Indication: GLIOBLASTOMA
     Route: 042
     Dates: start: 20180710, end: 20181002

REACTIONS (3)
  - Aspiration [Fatal]
  - Pulmonary embolism [Fatal]
  - Pneumonia [Fatal]
